FAERS Safety Report 7592022-7 (Version None)
Quarter: 2011Q2

REPORT INFORMATION
  Report Type: 
  Country: None (occurrence: None)
  Receive Date: 20110628
  Receipt Date: 20110616
  Transmission Date: 20111010
  Serious: Yes (Death, Hospitalization)
  Sender: FDA-Public Use
  Company Number: KR-JNJFOC-20110607529

PATIENT
  Age: 53 Year
  Sex: Male
  Weight: 76.2 kg

DRUGS (6)
  1. TRAMADOL HCL [Concomitant]
  2. POTASSIUM CHLORIDE [Concomitant]
  3. HEXOMEDINE (HEXOMEDINE) [Concomitant]
  4. DECITABINE [Suspect]
     Indication: MYELODYSPLASTIC SYNDROME
     Dosage: 20 MG/M2, 1 IN 1 DAY, INTRAVENOUS, 20 MG/M2, 1 IN 1 DAY, INTRAVENOUS
     Route: 042
     Dates: start: 20110613
  5. DECITABINE [Suspect]
     Indication: MYELODYSPLASTIC SYNDROME
     Dosage: 20 MG/M2, 1 IN 1 DAY, INTRAVENOUS, 20 MG/M2, 1 IN 1 DAY, INTRAVENOUS
     Route: 042
     Dates: start: 20110516, end: 20110520
  6. CHLORPHENIRAMINE MALEATE [Concomitant]

REACTIONS (2)
  - COLD SWEAT [None]
  - DYSPNOEA [None]
